FAERS Safety Report 11719557 (Version 1)
Quarter: 2015Q4

REPORT INFORMATION
  Report Type: Spontaneous
  Country: US (occurrence: None)
  Receive Date: 20151109
  Receipt Date: 20151109
  Transmission Date: 20160304
  Serious: Yes (Life-Threatening, Hospitalization)
  Sender: FDA-Public Use
  Company Number: None

PATIENT
  Age: 73 Year
  Sex: Female
  Weight: 76.2 kg

DRUGS (9)
  1. FLUTICASONE PROPIONATE. [Suspect]
     Active Substance: FLUTICASONE PROPIONATE
     Indication: SINUS CONGESTION
     Dosage: 2 SPRAYS EACH NOSTRIL, DAILY ONCE DAILY INHALATION
     Route: 055
     Dates: start: 20150801, end: 20151026
  2. CALCIUM CITRINE [Concomitant]
  3. FLUTICASONE PROPIONATE. [Suspect]
     Active Substance: FLUTICASONE PROPIONATE
     Indication: RHINITIS
     Dosage: 2 SPRAYS EACH NOSTRIL, DAILY ONCE DAILY INHALATION
     Route: 055
     Dates: start: 20150801, end: 20151026
  4. NORVASC [Concomitant]
     Active Substance: AMLODIPINE BESYLATE
     Indication: SINUS CONGESTION
  5. BETA-BLOCKER [Concomitant]
     Active Substance: UNSPECIFIED INGREDIENT
  6. MAGNESIUM [Concomitant]
     Active Substance: MAGNESIUM
  7. CRANBERRY. [Concomitant]
     Active Substance: CRANBERRY
  8. PEPCID [Concomitant]
     Active Substance: FAMOTIDINE
  9. NORVASC [Concomitant]
     Active Substance: AMLODIPINE BESYLATE
     Indication: RHINITIS

REACTIONS (6)
  - Cardiac disorder [None]
  - Blood pressure increased [None]
  - Fatigue [None]
  - Panic reaction [None]
  - Heart rate abnormal [None]
  - Back pain [None]

NARRATIVE: CASE EVENT DATE: 20151026
